FAERS Safety Report 5907497-6 (Version None)
Quarter: 2008Q4

REPORT INFORMATION
  Report Type: 
  Country: None (occurrence: None)
  Receive Date: 20080929
  Receipt Date: 20080918
  Transmission Date: 20090506
  Serious: Yes (Death, Other)
  Sender: FDA-Public Use
  Company Number: GXKR2008GB08419

PATIENT
  Age: 31 Year
  Sex: Female
  Weight: 55.5 kg

DRUGS (8)
  1. DIAZEPAM [Suspect]
     Dosage: 4 MG, TID
  2. AMITRIPTYLINE HYDROCHLORIDE [Suspect]
     Dosage: 100 MG, QD
  3. BUSPIRONE HCL [Suspect]
     Dosage: 5 MG, BID
  4. HUMALOG [Suspect]
  5. LEVEMIR [Suspect]
     Dosage: 300 MG, QD
  6. PREGABALIN (PREGABALIN) [Suspect]
  7. QUETIAPINE FUMARATE [Suspect]
     Dosage: 250 MG, ORAL
     Route: 048
  8. VALPROIC ACID [Suspect]
     Dosage: 400 MG, BID

REACTIONS (5)
  - BLOOD GLUCOSE DECREASED [None]
  - DIABETES MELLITUS INADEQUATE CONTROL [None]
  - GENERALISED ANXIETY DISORDER [None]
  - PANIC ATTACK [None]
  - SUDDEN CARDIAC DEATH [None]
